FAERS Safety Report 23484970 (Version 1)
Quarter: 2024Q1

REPORT INFORMATION
  Report Type: Spontaneous
  Country: FR (occurrence: FR)
  Receive Date: 20240206
  Receipt Date: 20240206
  Transmission Date: 20240409
  Serious: Yes (Life-Threatening)
  Sender: FDA-Public Use
  Company Number: None

PATIENT
  Age: 72 Year
  Sex: Female
  Weight: 65 kg

DRUGS (12)
  1. ASPERCREME LIDOCAINE NO-MESS PLUS LAVENDER [Suspect]
     Active Substance: LIDOCAINE HYDROCHLORIDE
     Indication: Anaesthesia
     Dosage: 100 MG, 1X
     Route: 042
     Dates: start: 20220504, end: 20220504
  2. DEXAMETHASONE [Suspect]
     Active Substance: DEXAMETHASONE
     Indication: Anaesthesia
     Dosage: 8 MG, 1X
     Route: 042
     Dates: start: 20220504, end: 20220504
  3. METRONIDAZOLE [Suspect]
     Active Substance: METRONIDAZOLE
     Indication: Infection prophylaxis
     Dosage: 1000 MG, 1X
     Route: 042
     Dates: start: 20220504, end: 20220504
  4. PROPOFOL [Suspect]
     Active Substance: PROPOFOL
     Indication: Anaesthesia
     Dosage: 2053 MG, 1X
     Route: 042
     Dates: start: 20220504, end: 20220504
  5. SUFENTANIL [Suspect]
     Active Substance: SUFENTANIL
     Indication: Anaesthesia
     Dosage: 67.4 UG, 1X
     Route: 042
     Dates: start: 20220504, end: 20220504
  6. KETAMINE [Suspect]
     Active Substance: KETAMINE
     Indication: Anaesthesia
     Dosage: 50 MG, 1X
     Route: 042
     Dates: start: 20220504, end: 20220504
  7. CISATRACURIUM [Suspect]
     Active Substance: CISATRACURIUM
     Indication: Anaesthesia
     Dosage: 26.18 MG, 1X
     Route: 042
     Dates: start: 20220504, end: 20220504
  8. ANAFRANIL [Concomitant]
     Active Substance: CLOMIPRAMINE HYDROCHLORIDE
     Indication: Product used for unknown indication
     Dosage: UNK
  9. VALACYCLOVIR HYDROCHLORIDE [Concomitant]
     Active Substance: VALACYCLOVIR HYDROCHLORIDE
     Indication: Product used for unknown indication
     Dosage: UNK
  10. GINKOR [GINKGO BILOBA] [Concomitant]
     Indication: Product used for unknown indication
     Dosage: UNK
  11. ATENOLOL [Concomitant]
     Active Substance: ATENOLOL
     Indication: Product used for unknown indication
     Dosage: UNK
  12. SPAGULAX [Concomitant]
     Active Substance: HERBALS\PLANTAGO OVATA SEED
     Indication: Product used for unknown indication
     Dosage: UNK

REACTIONS (1)
  - Hypersensitivity [Recovered/Resolved]
